FAERS Safety Report 9056020 (Version 1)
Quarter: 2013Q1

REPORT INFORMATION
  Report Type: Spontaneous
  Country: BR (occurrence: BR)
  Receive Date: 20130205
  Receipt Date: 20130205
  Transmission Date: 20140127
  Serious: Yes (Other)
  Sender: FDA-Public Use
  Company Number: PHHY2012BR067978

PATIENT
  Sex: Female

DRUGS (2)
  1. DIOVAN HCT [Suspect]
     Indication: HYPERTENSION
     Dosage: 1 DF (80 MG VALS AND 12.5 MG HCTZ), DAILY
  2. NEOTIAPIM [Concomitant]
     Dosage: 1 DF (100 MG), DAILY

REACTIONS (3)
  - Dementia Alzheimer^s type [Recovering/Resolving]
  - Memory impairment [Unknown]
  - Abasia [Unknown]
